FAERS Safety Report 7822079 (Version 4)
Quarter: 2013Q4

REPORT INFORMATION
  Report Type: Report from Study
  Country: DE (occurrence: DE)
  Receive Date: 20110222
  Receipt Date: 20131113
  Transmission Date: 20140711
  Serious: Yes (Life-Threatening)
  Sender: FDA-Public Use
  Company Number: DE-CELGENEUS-062-50794-11021770

PATIENT
  Age: 44 Year
  Sex: Male
  Weight: 83 kg

DRUGS (70)
  1. VIDAZA [Suspect]
     Indication: ACUTE MYELOID LEUKAEMIA
     Dosage: 2013 MILLIGRAM
     Route: 050
     Dates: start: 20110201, end: 20110206
  2. IDARUBICIN [Suspect]
     Indication: ACUTE MYELOID LEUKAEMIA
     Dosage: 24.36 MILLIGRAM
     Route: 065
     Dates: start: 20110201, end: 20110203
  3. ETOPOSID [Suspect]
     Indication: ACUTE MYELOID LEUKAEMIA
     Dosage: 203 MILLIGRAM
     Route: 065
     Dates: start: 20110201, end: 20110203
  4. FILGRASTIM [Concomitant]
     Indication: PRODUCT USED FOR UNKNOWN INDICATION
     Dosage: 30 MILLION UNITS
     Route: 058
     Dates: start: 20110213, end: 20110214
  5. PREDNISOLONE [Concomitant]
     Indication: PRODUCT USED FOR UNKNOWN INDICATION
     Dosage: 250 MILLIGRAM
     Route: 041
     Dates: start: 20110212, end: 20110212
  6. PREDNISOLONE [Concomitant]
     Dosage: 100 MILLIGRAM
     Route: 041
     Dates: start: 20110223, end: 20110223
  7. PREDNISOLONE [Concomitant]
     Dosage: 100 MILLIGRAM
     Route: 041
     Dates: start: 20110224, end: 20110224
  8. PREDNISOLONE [Concomitant]
     Dosage: 100 MILLIGRAM
     Route: 041
     Dates: start: 20110226, end: 20110303
  9. RANITIDINE [Concomitant]
     Indication: PRODUCT USED FOR UNKNOWN INDICATION
     Dosage: 150 MILLIGRAM
     Route: 041
     Dates: start: 20110212, end: 20110214
  10. RANITIDINE [Concomitant]
     Dosage: 50 MILLIGRAM
     Route: 041
     Dates: start: 20110224, end: 20110224
  11. RANITIDINE [Concomitant]
     Dosage: 50 MILLIGRAM
     Route: 041
     Dates: start: 20110225, end: 20110303
  12. FENISTIL [Concomitant]
     Indication: PRODUCT USED FOR UNKNOWN INDICATION
     Dosage: 4 MILLIGRAM
     Route: 041
     Dates: start: 20110212, end: 20110212
  13. FENISTIL [Concomitant]
     Dosage: 1-3
     Route: 061
     Dates: start: 20110212, end: 20110214
  14. FENISTIL [Concomitant]
     Dosage: 4 MILLIGRAM
     Route: 041
     Dates: start: 20110213, end: 20110213
  15. FENISTIL [Concomitant]
     Dosage: 4 MILLIGRAM
     Route: 041
     Dates: start: 20110213, end: 20110214
  16. FENISTIL [Concomitant]
     Route: 041
     Dates: start: 20110224, end: 20110224
  17. FENISTIL [Concomitant]
     Dosage: 4 MILLIGRAM
     Route: 041
     Dates: start: 20110224, end: 20110224
  18. PANTOPRAZOL [Concomitant]
     Indication: PRODUCT USED FOR UNKNOWN INDICATION
     Dosage: 40 MILLIGRAM
     Route: 048
     Dates: start: 20110212, end: 20110214
  19. PANTOPRAZOL [Concomitant]
     Dosage: 40 MILLIGRAM
     Route: 048
     Dates: start: 20110224, end: 20110303
  20. AMPHOTERICIN B [Concomitant]
     Indication: PRODUCT USED FOR UNKNOWN INDICATION
     Dosage: 18 MILLILITER
     Route: 065
     Dates: start: 20110212, end: 20110214
  21. VITAMINE K [Concomitant]
     Indication: PRODUCT USED FOR UNKNOWN INDICATION
     Dosage: 10 MILLIGRAM
     Route: 048
     Dates: start: 20110224, end: 20110303
  22. DEXAMETHASONE [Concomitant]
     Indication: PRODUCT USED FOR UNKNOWN INDICATION
     Dosage: 8 MILLIGRAM
     Route: 041
     Dates: start: 20110213, end: 20110213
  23. FUROSEMIDE [Concomitant]
     Indication: PRODUCT USED FOR UNKNOWN INDICATION
     Dosage: 40 MILLIGRAM
     Route: 041
     Dates: start: 20110223, end: 20110301
  24. FUROSEMIDE [Concomitant]
     Route: 041
     Dates: start: 20110224, end: 20110303
  25. MORPHINE [Concomitant]
     Indication: PRODUCT USED FOR UNKNOWN INDICATION
     Dosage: 5 MILLIGRAM
     Route: 041
     Dates: start: 20110224, end: 20110303
  26. POSACONAZOLE [Concomitant]
     Indication: PRODUCT USED FOR UNKNOWN INDICATION
     Dosage: 800 MILLIGRAM
     Route: 048
     Dates: start: 20110224, end: 20110224
  27. POSACONAZOLE [Concomitant]
     Dosage: 800 MILLIGRAM
     Route: 048
     Dates: start: 20110224, end: 20110303
  28. PANTHENOL [Concomitant]
     Indication: PRODUCT USED FOR UNKNOWN INDICATION
     Dosage: 1-3MM
     Route: 065
     Dates: start: 20110224, end: 20110303
  29. GENTAMYCINE [Concomitant]
     Indication: PRODUCT USED FOR UNKNOWN INDICATION
     Dosage: 1-2
     Route: 065
     Dates: start: 20110224, end: 20110303
  30. ACICLOVIR [Concomitant]
     Indication: PRODUCT USED FOR UNKNOWN INDICATION
     Route: 065
     Dates: start: 20110225, end: 20110303
  31. ACICLOVIR [Concomitant]
     Route: 048
     Dates: start: 20110301, end: 20110302
  32. ACICLOVIR [Concomitant]
     Dosage: 400 MILLIGRAM
     Route: 048
     Dates: start: 20110302, end: 20110303
  33. ACICLOVIR [Concomitant]
     Dosage: 2250 MILLIGRAM
     Route: 041
     Dates: start: 20110224, end: 20110301
  34. IPRATROPIUM BROMIDE [Concomitant]
     Indication: PRODUCT USED FOR UNKNOWN INDICATION
     Dosage: 0.025%
     Route: 065
     Dates: start: 20110226, end: 20110303
  35. LORAZEPAM [Concomitant]
     Indication: PRODUCT USED FOR UNKNOWN INDICATION
     Dosage: 0.5 - 1 MG
     Route: 048
     Dates: start: 20110227, end: 20110303
  36. VALPROATE [Concomitant]
     Indication: PRODUCT USED FOR UNKNOWN INDICATION
     Route: 041
     Dates: start: 20110228, end: 20110228
  37. VALPROATE [Concomitant]
     Route: 041
     Dates: start: 20110228, end: 20110228
  38. VALPROATE [Concomitant]
     Route: 041
     Dates: start: 20110228, end: 20110228
  39. LACTULOSE [Concomitant]
     Indication: PRODUCT USED FOR UNKNOWN INDICATION
     Dosage: 40 MILLILITER
     Route: 048
     Dates: start: 20110228, end: 20110303
  40. PETHIDIN [Concomitant]
     Indication: PRODUCT USED FOR UNKNOWN INDICATION
     Route: 041
     Dates: start: 20110302, end: 20110303
  41. NOREPINEPHRINE [Concomitant]
     Indication: PRODUCT USED FOR UNKNOWN INDICATION
     Route: 050
     Dates: start: 20110212, end: 20110214
  42. NOREPINEPHRINE [Concomitant]
     Route: 050
     Dates: start: 20110224, end: 20110227
  43. IMIPENEM [Concomitant]
     Indication: PRODUCT USED FOR UNKNOWN INDICATION
     Dosage: 2 GRAM
     Route: 041
     Dates: start: 20110212, end: 20110214
  44. AMIKACIN [Concomitant]
     Indication: PRODUCT USED FOR UNKNOWN INDICATION
     Dosage: 1500 MILLIGRAM
     Route: 050
     Dates: start: 20110223, end: 20110224
  45. MEROPENEM [Concomitant]
     Indication: PRODUCT USED FOR UNKNOWN INDICATION
     Dosage: 0.025%
     Route: 041
     Dates: start: 20110224, end: 20110224
  46. LINEZOLID [Concomitant]
     Indication: PRODUCT USED FOR UNKNOWN INDICATION
     Dosage: 0.025%
     Route: 041
     Dates: start: 20110224, end: 20110303
  47. TIGECYCLINE [Concomitant]
     Indication: PRODUCT USED FOR UNKNOWN INDICATION
     Dosage: 100 MILLIGRAM
     Route: 041
     Dates: start: 20110224, end: 20110224
  48. CLARITHROMYCIN [Concomitant]
     Indication: PRODUCT USED FOR UNKNOWN INDICATION
     Dosage: 1000 MILLIGRAM
     Route: 065
     Dates: start: 20110224, end: 20110303
  49. DORIPENEM [Concomitant]
     Indication: PRODUCT USED FOR UNKNOWN INDICATION
     Dosage: 1500 MILLIGRAM
     Route: 065
     Dates: start: 20110224, end: 20110303
  50. POTASSIUM CHLORIDE [Concomitant]
     Indication: PRODUCT USED FOR UNKNOWN INDICATION
     Dosage: 1500 MILLIGRAM
     Route: 065
     Dates: start: 20110225, end: 20110302
  51. METAMIZOLE [Concomitant]
     Indication: PRODUCT USED FOR UNKNOWN INDICATION
     Route: 065
     Dates: start: 20110225, end: 20110302
  52. INSULIN [Concomitant]
     Indication: PRODUCT USED FOR UNKNOWN INDICATION
     Dosage: 0-10 IE
     Route: 041
     Dates: start: 20110301, end: 20110303
  53. PARACETAMOL [Concomitant]
     Indication: PRODUCT USED FOR UNKNOWN INDICATION
     Route: 065
     Dates: start: 20110301, end: 20110301
  54. THROMBOCYTES [Concomitant]
     Indication: PRODUCT USED FOR UNKNOWN INDICATION
     Route: 041
     Dates: start: 20110212, end: 20110214
  55. THROMBOCYTES [Concomitant]
     Route: 041
     Dates: start: 20110224, end: 20110303
  56. ERYTHROCYTES [Concomitant]
     Indication: PRODUCT USED FOR UNKNOWN INDICATION
     Route: 041
     Dates: start: 20110212, end: 20110214
  57. ERYTHROCYTES [Concomitant]
     Route: 041
     Dates: start: 20110225, end: 20110303
  58. NACL [Concomitant]
     Indication: PRODUCT USED FOR UNKNOWN INDICATION
     Dosage: 0.9
     Route: 041
     Dates: start: 20110212, end: 20110212
  59. NACL [Concomitant]
     Route: 041
     Dates: start: 20110212, end: 20110214
  60. NACL [Concomitant]
     Route: 041
     Dates: start: 20110223, end: 20110302
  61. NACL [Concomitant]
     Dosage: 40 - 150
     Route: 041
     Dates: start: 20110303, end: 20110303
  62. NACL [Concomitant]
     Route: 041
     Dates: start: 20110303, end: 20110303
  63. IONOSTERIL [Concomitant]
     Indication: PRODUCT USED FOR UNKNOWN INDICATION
     Route: 041
     Dates: start: 20110212, end: 20110214
  64. IONOSTERIL [Concomitant]
     Dosage: 0 - 100
     Route: 041
     Dates: start: 20110228, end: 20110302
  65. NUTRIFLEX [Concomitant]
     Indication: PRODUCT USED FOR UNKNOWN INDICATION
     Route: 041
     Dates: start: 20110224, end: 20110225
  66. NUTRIFLEX [Concomitant]
     Route: 041
     Dates: start: 20110225, end: 20110226
  67. NUTRIFLEX [Concomitant]
     Route: 041
     Dates: start: 20110226, end: 20110302
  68. NUTRIFLEX [Concomitant]
     Dosage: 0 - 42
     Route: 041
     Dates: start: 20110302, end: 20110303
  69. HUMAN ALBUMIN [Concomitant]
     Indication: PRODUCT USED FOR UNKNOWN INDICATION
     Dosage: 60 MILLILITER
     Route: 041
     Dates: start: 20110224, end: 20110225
  70. FORTIMEL ENERGY [Concomitant]
     Indication: PRODUCT USED FOR UNKNOWN INDICATION
     Route: 048
     Dates: start: 20110227, end: 20110303

REACTIONS (2)
  - Device related sepsis [Recovered/Resolved]
  - Sepsis [Recovered/Resolved]
